FAERS Safety Report 15420183 (Version 2)
Quarter: 2018Q4

REPORT INFORMATION
  Report Type: Report from Study
  Country: US (occurrence: US)
  Receive Date: 20180924
  Receipt Date: 20181212
  Transmission Date: 20190204
  Serious: Yes (Other)
  Sender: FDA-Public Use
  Company Number: US-SA-2018SA006905

PATIENT
  Age: 41 Year
  Sex: Male

DRUGS (4)
  1. DUPILUMAB [Suspect]
     Active Substance: DUPILUMAB
     Indication: ECZEMA
     Dosage: 600 MG, 1X
     Route: 058
     Dates: start: 201804, end: 201804
  2. DUPILUMAB [Suspect]
     Active Substance: DUPILUMAB
     Indication: DERMATITIS ATOPIC
     Dosage: 300 MG, QOW
     Route: 058
     Dates: start: 20170606
  3. DUPILUMAB [Suspect]
     Active Substance: DUPILUMAB
     Dosage: 300 MG, QOW
     Route: 058
     Dates: start: 2018, end: 201808
  4. DUPILUMAB [Suspect]
     Active Substance: DUPILUMAB
     Dosage: 150 MG, QM
     Route: 058
     Dates: start: 20181112

REACTIONS (12)
  - Eye discharge [Not Recovered/Not Resolved]
  - Eye discharge [Not Recovered/Not Resolved]
  - Dry skin [Recovered/Resolved]
  - Erythema [Recovered/Resolved]
  - Eye pruritus [Recovering/Resolving]
  - Pruritus [Recovered/Resolved]
  - Ocular hyperaemia [Recovering/Resolving]
  - Eyelid irritation [Not Recovered/Not Resolved]
  - Conjunctivitis [Recovered/Resolved]
  - Blepharitis [Unknown]
  - Eye disorder [Not Recovered/Not Resolved]
  - Off label use [Unknown]

NARRATIVE: CASE EVENT DATE: 2017
